FAERS Safety Report 4709955-9 (Version None)
Quarter: 2005Q3

REPORT INFORMATION
  Report Type: 
  Country: None (occurrence: None)
  Receive Date: 20050708
  Receipt Date: 20050629
  Transmission Date: 20060218
  Serious: Yes (Other)
  Sender: FDA-Public Use
  Company Number: BR-JNJFOC-20050700913

PATIENT
  Age: 8 Month
  Sex: Female

DRUGS (2)
  1. TYLENOL (CAPLET) [Suspect]
  2. TYLENOL (CAPLET) [Suspect]
     Indication: PAIN

REACTIONS (6)
  - DERMATITIS BULLOUS [None]
  - ERYTHEMA [None]
  - EYELID OEDEMA [None]
  - OCULAR HYPERAEMIA [None]
  - REACTION TO PRESERVATIVES [None]
  - SKIN DISCOLOURATION [None]
